FAERS Safety Report 8085149-7 (Version None)
Quarter: 2012Q1

REPORT INFORMATION
  Report Type: 
  Country: None (occurrence: None)
  Receive Date: 20120128
  Receipt Date: 20110311
  Transmission Date: 20120608
  Serious: No
  Sender: FDA-Public Use
  Company Number: US-ABBOTT-11P-163-0711611-00

PATIENT
  Sex: Male
  Weight: 79.45 kg

DRUGS (3)
  1. HUMIRA [Suspect]
     Indication: CROHN'S DISEASE
     Route: 058
     Dates: start: 20101101
  2. KLONOPIN [Concomitant]
     Indication: ANXIETY
  3. PREDNISONE TAB [Concomitant]
     Indication: CROHN'S DISEASE
     Dates: end: 20100901

REACTIONS (4)
  - PYREXIA [None]
  - FATIGUE [None]
  - NIGHT SWEATS [None]
  - OROPHARYNGEAL PAIN [None]
